FAERS Safety Report 22088996 (Version 1)
Quarter: 2023Q1

REPORT INFORMATION
  Report Type: Report from Study
  Country: CA (occurrence: CA)
  Receive Date: 20230313
  Receipt Date: 20230313
  Transmission Date: 20230418
  Serious: Yes (Hospitalization, Other)
  Sender: FDA-Public Use
  Company Number: CA-BAYER-2023A019357

PATIENT
  Age: 17 Year
  Sex: Female

DRUGS (1)
  1. NEXAVAR [Suspect]
     Active Substance: SORAFENIB
     Indication: Acute myeloid leukaemia
     Dosage: 300 MG, QD
     Route: 048
     Dates: start: 20230121

REACTIONS (3)
  - Laboratory test abnormal [Recovered/Resolved]
  - Rash [Recovered/Resolved]
  - Off label use [None]

NARRATIVE: CASE EVENT DATE: 20230121
